FAERS Safety Report 10391147 (Version 2)
Quarter: 2014Q3

REPORT INFORMATION
  Report Type: Spontaneous
  Country: GB (occurrence: GB)
  Receive Date: 20140818
  Receipt Date: 20140918
  Transmission Date: 20150326
  Serious: Yes (Other)
  Sender: FDA-Public Use
  Company Number: GB-ASTRAZENECA-2014SE57251

PATIENT
  Age: 78 Year
  Sex: Female

DRUGS (1)
  1. XYLOCAINE WITH EPINEPHRINE [Suspect]
     Active Substance: EPINEPHRINE BITARTRATE\LIDOCAINE HYDROCHLORIDE
     Indication: BIOPSY BREAST
     Dosage: 20MG/ML/5MCG/ML
     Dates: start: 20110606

REACTIONS (1)
  - Haematoma [Recovered/Resolved]
